FAERS Safety Report 18373327 (Version 3)
Quarter: 2021Q1

REPORT INFORMATION
  Report Type: Report from Study
  Country: US (occurrence: US)
  Receive Date: 20201012
  Receipt Date: 20210226
  Transmission Date: 20210419
  Serious: Yes (Hospitalization)
  Sender: FDA-Public Use
  Company Number: US-JNJFOC-20200935935

PATIENT
  Age: 73 Year
  Sex: Female
  Weight: 95.79 kg

DRUGS (23)
  1. LOPRESSOR [Concomitant]
     Active Substance: METOPROLOL TARTRATE
  2. CYMBALTA [Concomitant]
     Active Substance: DULOXETINE HYDROCHLORIDE
  3. DESYREL [Concomitant]
     Active Substance: TRAZODONE HYDROCHLORIDE
  4. MULTIVITAMINS [Concomitant]
     Active Substance: VITAMINS
  5. MACITENTAN [Suspect]
     Active Substance: MACITENTAN
     Indication: PULMONARY ARTERIAL HYPERTENSION
     Route: 048
     Dates: start: 20200817, end: 20200922
  6. REVATIO [Concomitant]
     Active Substance: SILDENAFIL CITRATE
  7. PROCHLORPERAZINE MALEATE. [Concomitant]
     Active Substance: PROCHLORPERAZINE MALEATE
  8. ASPRIN [Concomitant]
     Active Substance: ASPIRIN
  9. SYMBICORT [Concomitant]
     Active Substance: BUDESONIDE\FORMOTEROL FUMARATE DIHYDRATE
     Dosage: 160?4.5 MCG/ ACTUATION
  10. LASIX [Concomitant]
     Active Substance: FUROSEMIDE
  11. FISH OIL [Concomitant]
     Active Substance: FISH OIL
  12. TREPROSTINIL. [Concomitant]
     Active Substance: TREPROSTINIL
  13. FLONASE [Concomitant]
     Active Substance: FLUTICASONE PROPIONATE
  14. OXYGEN. [Concomitant]
     Active Substance: OXYGEN
     Route: 045
  15. TYVASO [Suspect]
     Active Substance: TREPROSTINIL
     Indication: PRODUCT USED FOR UNKNOWN INDICATION
     Dosage: 4 TIMES A DAY AT 3 BREATHS EACH
     Route: 055
  16. AMLODIPINE [Concomitant]
     Active Substance: AMLODIPINE BESYLATE
  17. ALBUTEROL SULFATE HFA [Concomitant]
     Active Substance: ALBUTEROL SULFATE
  18. ALLOPURINOL. [Concomitant]
     Active Substance: ALLOPURINOL
  19. COLACE [Concomitant]
     Active Substance: DOCUSATE SODIUM
  20. CLARITIN [Concomitant]
     Active Substance: LORATADINE
  21. POTASSIUM CHLORIDE. [Concomitant]
     Active Substance: POTASSIUM CHLORIDE
  22. IMDUR [Concomitant]
     Active Substance: ISOSORBIDE MONONITRATE
  23. BRILINTA [Concomitant]
     Active Substance: TICAGRELOR

REACTIONS (9)
  - Acute left ventricular failure [Recovered/Resolved]
  - Weight decreased [Recovering/Resolving]
  - Nausea [Recovered/Resolved]
  - Vomiting [Recovered/Resolved]
  - Headache [Unknown]
  - Gastroenteritis [Recovered/Resolved]
  - Peripheral swelling [Recovered/Resolved]
  - Dehydration [Recovering/Resolving]
  - Airway burns [Recovered/Resolved]

NARRATIVE: CASE EVENT DATE: 20200921
